FAERS Safety Report 18339824 (Version 1)
Quarter: 2020Q4

REPORT INFORMATION
  Report Type: Report from Study
  Country: MX (occurrence: MX)
  Receive Date: 20201002
  Receipt Date: 20201002
  Transmission Date: 20210113
  Serious: Yes (Other)
  Sender: FDA-Public Use
  Company Number: NVSC2020MX244514

PATIENT
  Sex: Male
  Weight: 64 kg

DRUGS (7)
  1. ENTRESTO [Suspect]
     Active Substance: SACUBITRIL\VALSARTAN
     Dosage: 1 DF, BID(DOSE:50MG,START DATE:1 YEAR AND A HALF AGO)
     Route: 048
  2. ENTRESTO [Suspect]
     Active Substance: SACUBITRIL\VALSARTAN
     Dosage: 1 DF, BID(DOSE:50MG,START DATE:1 AND HALF YEAR AGO)
     Route: 048
  3. ENTRESTO [Suspect]
     Active Substance: SACUBITRIL\VALSARTAN
     Indication: BLOOD PRESSURE INCREASED
     Dosage: 1 DF, BID 1 DF(50 MG)
     Route: 048
     Dates: start: 201902
  4. COPLAVIX [Concomitant]
     Active Substance: ASPIRIN\CLOPIDOGREL BISULFATE
     Indication: THROMBOSIS PROPHYLAXIS
     Dosage: 1 DF, QD(DOSE:75MG/100MG,AT NIGHT)
     Route: 048
     Dates: start: 201907
  5. XARELTO [Concomitant]
     Active Substance: RIVAROXABAN
     Indication: THROMBOSIS PROPHYLAXIS
     Dosage: 1 DF, QD(DOSE:5MG,STOP DATE:HALF A YEAR AGO)
     Route: 048
     Dates: start: 201907
  6. ATORVASTATIN [Concomitant]
     Active Substance: ATORVASTATIN
     Indication: STENT PLACEMENT
     Dosage: 1 DF, QD(DOSE:20MG,AT NIGHT)
     Route: 048
     Dates: start: 201907
  7. SELOKEN [Concomitant]
     Active Substance: METOPROLOL
     Indication: PROPHYLAXIS
     Dosage: 0.5 DF, QD(DOSE:95MG,IN THE AFTERNOON)
     Route: 048
     Dates: start: 201907

REACTIONS (5)
  - Ejection fraction [Unknown]
  - Cardiac disorder [Unknown]
  - Cardiomegaly [Unknown]
  - Product use in unapproved indication [Unknown]
  - Ejection fraction decreased [Unknown]
